FAERS Safety Report 7713465-4 (Version None)
Quarter: 2011Q3

REPORT INFORMATION
  Report Type: 
  Country: None (occurrence: None)
  Receive Date: 20110826
  Receipt Date: 20110823
  Transmission Date: 20111222
  Serious: Yes (Life-Threatening, Hospitalization, Disabling, Other)
  Sender: FDA-Public Use
  Company Number: BR-PFIZER INC-2011195158

PATIENT
  Sex: Female

DRUGS (2)
  1. VARENICLINE TARTRATE [Suspect]
     Indication: SMOKING CESSATION THERAPY
     Dosage: 1 TABLET
     Route: 048
     Dates: start: 20100328, end: 20100330
  2. VARENICLINE TARTRATE [Suspect]
     Indication: TOBACCO USER
     Dosage: UNK
     Route: 048
     Dates: start: 20100331

REACTIONS (5)
  - OBSTRUCTION [None]
  - CONSTIPATION [None]
  - LIVER DISORDER [None]
  - URINARY RETENTION [None]
  - PANCREATITIS ACUTE [None]
